FAERS Safety Report 5145128-6 (Version None)
Quarter: 2006Q4

REPORT INFORMATION
  Report Type: 
  Country: None (occurrence: None)
  Receive Date: 20061107
  Receipt Date: 20060914
  Transmission Date: 20070319
  Serious: Yes (Hospitalization)
  Sender: FDA-Public Use
  Company Number: US-ELI_LILLY_AND_COMPANY-US200609003427

PATIENT
  Age: 70 Year
  Sex: Female
  Weight: 38.095 kg

DRUGS (20)
  1. FORTEO [Suspect]
     Indication: OSTEOPOROSIS
     Dosage: 20 UG, DAILY (1/D)
     Dates: start: 20051214
  2. ADVAIR DISKUS 100/50 [Concomitant]
  3. ASTELIN [Concomitant]
  4. ACTONEL                                 /USA/ [Concomitant]
  5. LIPITOR [Concomitant]
  6. CLONIDINE [Concomitant]
  7. TRAMADOL HCL [Concomitant]
  8. DYNACIRC CR [Concomitant]
  9. DILTIAZEM HCL [Concomitant]
  10. NEXIUM [Concomitant]
  11. LASIX [Concomitant]
  12. ASPIRIN [Concomitant]
  13. GINKOBILOBA [Concomitant]
  14. LACTAID [Concomitant]
  15. VITAMIN E [Concomitant]
  16. ASCORBIC ACID [Concomitant]
  17. CALCIUM W/VITAMIN D NOS [Concomitant]
  18. GLUCOSAMINE W/CHONDROITIN [Concomitant]
  19. MULTI-VITAMIN [Concomitant]
  20. BIMATOPROST [Concomitant]
     Route: 047

REACTIONS (1)
  - APPENDICITIS PERFORATED [None]
